FAERS Safety Report 14895841 (Version 1)
Quarter: 2018Q2

REPORT INFORMATION
  Report Type: Spontaneous
  Country: JP (occurrence: JP)
  Receive Date: 20180515
  Receipt Date: 20180515
  Transmission Date: 20180711
  Serious: Yes (Other)
  Sender: FDA-Public Use
  Company Number: JP-BAYER-2018-092701

PATIENT
  Age: 67 Year
  Sex: Female

DRUGS (2)
  1. CIMETIDINE [Concomitant]
     Active Substance: CIMETIDINE
  2. BAYASPIRIN 100 MG [Suspect]
     Active Substance: ASPIRIN
     Route: 048

REACTIONS (1)
  - Tubulointerstitial nephritis [None]
